FAERS Safety Report 5885010-X (Version None)
Quarter: 2008Q3

REPORT INFORMATION
  Report Type: 
  Country: None (occurrence: None)
  Receive Date: 20080915
  Receipt Date: 20080915
  Transmission Date: 20090109
  Serious: Yes (Life-Threatening)
  Sender: FDA-Public Use
  Company Number: None

PATIENT
  Age: 43 Year
  Sex: Female
  Weight: 62.1428 kg

DRUGS (1)
  1. BOTOX [Suspect]
     Indication: SKIN COSMETIC PROCEDURE
     Dates: start: 20080820, end: 20080820

REACTIONS (5)
  - ASTHENIA [None]
  - CHEST PAIN [None]
  - MALAISE [None]
  - NO THERAPEUTIC RESPONSE [None]
  - RESPIRATORY TRACT INFECTION [None]
